FAERS Safety Report 14164634 (Version 1)
Quarter: 2017Q4

REPORT INFORMATION
  Report Type: Spontaneous
  Country: US (occurrence: US)
  Receive Date: 20171107
  Receipt Date: 20171107
  Transmission Date: 20180321
  Serious: No
  Sender: FDA-Public Use
  Company Number: US-PFIZER INC-2017474101

PATIENT
  Age: 78 Year
  Sex: Female
  Weight: 49.9 kg

DRUGS (1)
  1. GABAPENTIN. [Suspect]
     Active Substance: GABAPENTIN
     Indication: VERTIGO
     Dosage: UNK

REACTIONS (2)
  - Product use in unapproved indication [Unknown]
  - Blood pressure decreased [Unknown]
